FAERS Safety Report 7629517-3 (Version None)
Quarter: 2011Q3

REPORT INFORMATION
  Report Type: 
  Country: None (occurrence: None)
  Receive Date: 20110722
  Receipt Date: 20110128
  Transmission Date: 20111222
  Serious: No
  Sender: FDA-Public Use
  Company Number: US-BAYER-2011-011814

PATIENT
  Sex: Male

DRUGS (1)
  1. BETASERON [Suspect]
     Indication: MULTIPLE MYELOMA
     Dosage: 0.3 MG, QOD
     Route: 058
     Dates: start: 20031128

REACTIONS (1)
  - FATIGUE [None]
